FAERS Safety Report 4422474-2 (Version None)
Quarter: 2004Q3

REPORT INFORMATION
  Report Type: 
  Country: None (occurrence: None)
  Receive Date: 20040804
  Receipt Date: 20040727
  Transmission Date: 20050211
  Serious: Yes (Other)
  Sender: FDA-Public Use
  Company Number: 2004225780US

PATIENT
  Age: 56 Year
  Sex: Female

DRUGS (5)
  1. PROVERA [Suspect]
     Dates: start: 19960827, end: 19970130
  2. PREMPRO [Suspect]
     Dates: start: 19970801, end: 19971026
  3. ESTRACE [Suspect]
     Dates: start: 19940430, end: 19970709
  4. FEMHRT [Suspect]
     Dates: start: 20010122, end: 20010814
  5. MEDROXYPROGESTERONE ACETATE [Suspect]
     Dates: start: 19980922, end: 20000322

REACTIONS (1)
  - BREAST CANCER FEMALE [None]
